FAERS Safety Report 4696690-9 (Version None)
Quarter: 2005Q2

REPORT INFORMATION
  Report Type: 
  Country: None (occurrence: None)
  Receive Date: 20050620
  Receipt Date: 20050603
  Transmission Date: 20051028
  Serious: No
  Sender: FDA-Public Use
  Company Number: US015388

PATIENT
  Age: 3 Year
  Sex: Male

DRUGS (1)
  1. ACTIQ [Suspect]
     Dosage: 800 UG ONCE BUCCAL
     Route: 002
     Dates: start: 20050603, end: 20050603

REACTIONS (2)
  - ACCIDENTAL DRUG INTAKE BY CHILD [None]
  - EYE DISORDER [None]
